FAERS Safety Report 7524560-7 (Version None)
Quarter: 2011Q2

REPORT INFORMATION
  Report Type: 
  Country: None (occurrence: None)
  Receive Date: 20110606
  Receipt Date: 20110525
  Transmission Date: 20111010
  Serious: Yes (Hospitalization)
  Sender: FDA-Public Use
  Company Number: FR-JNJFOC-20110511902

PATIENT
  Sex: Female

DRUGS (3)
  1. LEVOFLOXACIN [Suspect]
     Indication: SPONDYLITIS
     Route: 048
     Dates: start: 20110129, end: 20110223
  2. AMOXICILLIN [Suspect]
     Route: 048
  3. AMOXICILLIN [Suspect]
     Indication: SPONDYLITIS
     Route: 048
     Dates: start: 20110129, end: 20110223

REACTIONS (5)
  - PYREXIA [None]
  - THROMBOCYTOPENIA [None]
  - PURPURA [None]
  - BLOOD PRESSURE DECREASED [None]
  - URTICARIA [None]
